FAERS Safety Report 25400431 (Version 1)
Quarter: 2025Q2

REPORT INFORMATION
  Report Type: Spontaneous
  Country: DE (occurrence: DE)
  Receive Date: 20250605
  Receipt Date: 20250605
  Transmission Date: 20250717
  Serious: Yes (Other)
  Sender: B BRAUN
  Company Number: DE-B.Braun Medical Inc.-2178063

PATIENT
  Sex: Male

DRUGS (9)
  1. SODIUM CHLORIDE [Suspect]
     Active Substance: SODIUM CHLORIDE
  2. CALCIUM [Suspect]
     Active Substance: CALCIUM
  3. LEUCOVORIN CALCIUM [Suspect]
     Active Substance: LEUCOVORIN CALCIUM
  4. FLUOROURACIL [Suspect]
     Active Substance: FLUOROURACIL
  5. GRANISETRON [Suspect]
     Active Substance: GRANISETRON
  6. DEXAMETHASONE [Suspect]
     Active Substance: DEXAMETHASONE
  7. BEVACIZUMAB [Suspect]
     Active Substance: BEVACIZUMAB
  8. OXALIPLATIN [Suspect]
     Active Substance: OXALIPLATIN
  9. MAGNESIUM [Suspect]
     Active Substance: MAGNESIUM

REACTIONS (11)
  - Anaphylactic reaction [Recovered/Resolved]
  - Tachycardia [Recovered/Resolved]
  - Hypotension [Recovered/Resolved]
  - Hyperhidrosis [Recovered/Resolved]
  - Swelling face [Recovered/Resolved]
  - Lip swelling [Recovered/Resolved]
  - Dyspnoea [Recovered/Resolved]
  - Personality change [Recovered/Resolved]
  - Pyrexia [Recovered/Resolved]
  - Circulatory collapse [Recovered/Resolved]
  - Hypersensitivity [Recovered/Resolved]
